FAERS Safety Report 8170734 (Version 3)
Quarter: 2013Q1

REPORT INFORMATION
  Report Type: Spontaneous
  Country: PT (occurrence: None)
  Receive Date: 20110914
  Receipt Date: 20121228
  Transmission Date: 20140127
  Serious: Yes (Hospitalization, Other)
  Sender: FDA-Public Use
  Company Number: THQ2011A05419

PATIENT
  Age: 44 Year
  Sex: Male

DRUGS (7)
  1. COMPETACT (PIOGLITAZONE HYDROCHLORIDE, METFORMIN HYDROCHLORIDE) (PIOGLITAZONE HYDROCHLORIDE 15 MG/METFORMIN HYDROCHLORIDE 850 MG, 1 IN 1 D) [Suspect]
     Indication: DIABETES MELLITUS
     Dosage: PIOGLITAZONE HYDROCHLORIDE 15 MG/METFORMIN HYDROCHLORIDE 850 MG, 1 IN 1 D, ORAL
     Route: 048
     Dates: start: 20081219, end: 20110818
  2. METFORMIN HYDROCHLORIDE [Concomitant]
  3. GLIMEPIRIDE [Concomitant]
  4. SERTRALINE HYDROCHLORIDE [Concomitant]
  5. INSULIN GLARGINE [Concomitant]
  6. BUPROPION HYDROCHLORIDE [Concomitant]
  7. CLOXAZOLAM [Concomitant]

REACTIONS (1)
  - Bladder transitional cell carcinoma [None]
